FAERS Safety Report 11310523 (Version 2)
Quarter: 2015Q3

REPORT INFORMATION
  Report Type: Spontaneous
  Country: US (occurrence: US)
  Receive Date: 20150724
  Receipt Date: 20150930
  Transmission Date: 20151125
  Serious: Yes (Other)
  Sender: FDA-Public Use
  Company Number: US-ASTRAZENECA-2015SE70650

PATIENT
  Age: 75 Year
  Sex: Female
  Weight: 75.8 kg

DRUGS (32)
  1. BRILINTA [Suspect]
     Active Substance: TICAGRELOR
     Indication: MYOCARDIAL INFARCTION
     Route: 048
     Dates: start: 20141010
  2. ISOSORBIDE MONONITRATE. [Concomitant]
     Active Substance: ISOSORBIDE MONONITRATE
     Route: 048
     Dates: start: 20150616
  3. FUROSEMIDE. [Concomitant]
     Active Substance: FUROSEMIDE
     Indication: DIURETIC THERAPY
     Route: 048
  4. STOOL SOFTENER [Concomitant]
     Active Substance: DOCUSATE CALCIUM
  5. HYDROCODONE [Concomitant]
     Active Substance: HYDROCODONE
     Indication: PAIN
     Dosage: 5-325 MG, 1 ORAL EVERY 6 HOURS, AS REQUIRED
     Route: 048
  6. METOPROLOL SUCCINATE. [Suspect]
     Active Substance: METOPROLOL SUCCINATE
     Indication: BLOOD PRESSURE ABNORMAL
     Route: 048
     Dates: start: 2007
  7. RANEXA [Concomitant]
     Active Substance: RANOLAZINE
     Route: 048
     Dates: start: 20141128
  8. ATORVASTATIN [Concomitant]
     Active Substance: ATORVASTATIN
     Indication: MYOCARDIAL INFARCTION
     Route: 048
     Dates: start: 20150130
  9. BETAMETHASONE DIPROPIONATE. [Concomitant]
     Active Substance: BETAMETHASONE DIPROPIONATE
     Indication: DRY SKIN
     Dosage: (UPTO 3 TIMES A DAY) 0.05%, 1 EXTERNAL AS NEEDED
     Route: 061
  10. FENATYL [Concomitant]
     Active Substance: FENTANYL
     Dosage: 50 MCG/ML, 25MCG IV
     Route: 042
  11. ATENOLOL. [Suspect]
     Active Substance: ATENOLOL
     Route: 065
  12. ISOSORBIDE MONONITRATE. [Concomitant]
     Active Substance: ISOSORBIDE MONONITRATE
     Route: 048
     Dates: start: 20150521
  13. SELENIUM SULFIDE. [Concomitant]
     Active Substance: SELENIUM SULFIDE
     Indication: DRY SKIN
     Dosage: 2.5 %, 1 EXTERNAL AS NEEDED
     Route: 061
  14. AMLODIPINE BESYLATE. [Concomitant]
     Active Substance: AMLODIPINE BESYLATE
     Route: 048
     Dates: start: 20110902
  15. NITROGLYCERIN. [Concomitant]
     Active Substance: NITROGLYCERIN
     Indication: CARDIAC DISORDER
     Route: 060
     Dates: start: 20090410
  16. AMMONIUM LACTATE. [Concomitant]
     Active Substance: AMMONIUM LACTATE
     Indication: BACK DISORDER
     Dosage: TWO TIMES A DAY
     Route: 061
  17. LASIX [Concomitant]
     Active Substance: FUROSEMIDE
     Route: 048
     Dates: start: 20141103
  18. FENATYL [Concomitant]
     Active Substance: FENTANYL
     Dosage: 50 MCG/ML, 50MCG IV
     Route: 042
  19. ASPIRIN. [Concomitant]
     Active Substance: ASPIRIN
     Indication: MYOCARDIAL INFARCTION
     Route: 048
     Dates: start: 20101101
  20. POTASSIUM CHLORIDE. [Concomitant]
     Active Substance: POTASSIUM CHLORIDE
     Indication: MUSCLE SPASMS
     Route: 048
  21. CORTICOSTEROID NOS [Concomitant]
     Active Substance: CORTICOSTEROID NOS
     Indication: FUNGAL INFECTION
     Route: 065
     Dates: start: 2013, end: 2015
  22. NYSTOP [Concomitant]
     Active Substance: NYSTATIN
     Indication: FUNGAL INFECTION
     Dosage: AS REQUIRED
     Route: 061
     Dates: start: 2015
  23. KETOCONAZOLE. [Concomitant]
     Active Substance: KETOCONAZOLE
     Dates: start: 20101101
  24. METOPROLOL SUCCINATE. [Suspect]
     Active Substance: METOPROLOL SUCCINATE
     Indication: BLOOD PRESSURE ABNORMAL
     Route: 048
     Dates: start: 20150401
  25. CLONIDINE HYDROCHLORIDE. [Concomitant]
     Active Substance: CLONIDINE HYDROCHLORIDE
     Indication: FOETAL HEART RATE ABNORMAL
     Route: 048
     Dates: start: 20071105
  26. ATORVASTATIN [Concomitant]
     Active Substance: ATORVASTATIN
     Indication: CEREBROVASCULAR ACCIDENT
     Route: 048
     Dates: start: 20150130
  27. NORVASC [Concomitant]
     Active Substance: AMLODIPINE BESYLATE
     Indication: HYPERTENSION
     Route: 048
  28. FLUTICASONE [Concomitant]
     Active Substance: FLUTICASONE\FLUTICASONE PROPIONATE
     Indication: MULTIPLE ALLERGIES
     Dosage: 50 MCG/ACT SUSPENSION, 1-2 SPRAY EACH NOSTRIL
     Route: 055
     Dates: start: 20101101
  29. TYLENOL [Concomitant]
     Active Substance: ACETAMINOPHEN
     Indication: PAIN
     Dosage: 325 MG, 2 ORAL EVERY 4 HOURS AS NEEDED
     Route: 048
  30. AMMONIUM LACTATE. [Concomitant]
     Active Substance: AMMONIUM LACTATE
     Indication: MUSCULOSKELETAL DISCOMFORT
     Dosage: TWO TIMES A DAY
     Route: 061
  31. GLIMEPIRIDE. [Concomitant]
     Active Substance: GLIMEPIRIDE
     Route: 048
  32. PEPCID [Concomitant]
     Active Substance: FAMOTIDINE

REACTIONS (31)
  - Gastric ulcer [Unknown]
  - Type 2 diabetes mellitus [Unknown]
  - Dizziness [Unknown]
  - Vertebral lesion [Unknown]
  - Muscular weakness [Unknown]
  - Fatigue [Unknown]
  - Polyp [Unknown]
  - Road traffic accident [Unknown]
  - Hypertension [Unknown]
  - Nausea [Unknown]
  - Gait disturbance [Unknown]
  - Drug hypersensitivity [Unknown]
  - Dyspnoea exertional [Unknown]
  - Chest pain [Unknown]
  - Rash [Unknown]
  - Angina pectoris [Unknown]
  - Pharyngeal disorder [Unknown]
  - Oesophageal achalasia [Unknown]
  - Fall [Unknown]
  - Back pain [Unknown]
  - Head injury [Unknown]
  - Pain [Unknown]
  - Contusion [Unknown]
  - Hyperlipidaemia [Unknown]
  - Neck pain [Unknown]
  - Bone disorder [Unknown]
  - Weight decreased [Unknown]
  - Obesity [Unknown]
  - Hiatus hernia [Unknown]
  - Gastrooesophageal reflux disease [Unknown]
  - Oedema peripheral [Unknown]

NARRATIVE: CASE EVENT DATE: 2014
